FAERS Safety Report 17058684 (Version 2)
Quarter: 2019Q4

REPORT INFORMATION
  Report Type: Spontaneous
  Country: US (occurrence: US)
  Receive Date: 20191121
  Receipt Date: 20191207
  Transmission Date: 20200122
  Serious: Yes (Hospitalization)
  Sender: FDA-Public Use
  Company Number: US-VERTEX PHARMACEUTICALS-2019-011602

PATIENT
  Sex: Female

DRUGS (25)
  1. CAYSTON [Concomitant]
     Active Substance: AZTREONAM
  2. GUANFACINE [GUANFACINE HYDROCHLORIDE] [Concomitant]
  3. FERROUS SULFATE. [Concomitant]
     Active Substance: FERROUS SULFATE
  4. LORATADINE. [Concomitant]
     Active Substance: LORATADINE
  5. ADVAIR HFA [Concomitant]
     Active Substance: FLUTICASONE PROPIONATE\SALMETEROL XINAFOATE
  6. TRAMADOL. [Concomitant]
     Active Substance: TRAMADOL
  7. NORCO [Concomitant]
     Active Substance: ACETAMINOPHEN\HYDROCODONE BITARTRATE
  8. SODIUM CHLORIDE. [Concomitant]
     Active Substance: SODIUM CHLORIDE
  9. VITAMIN D3 [Concomitant]
     Active Substance: CHOLECALCIFEROL
  10. DICLOFENAC [Concomitant]
     Active Substance: DICLOFENAC
  11. PROTONIX [OMEPRAZOLE] [Concomitant]
     Active Substance: OMEPRAZOLE
  12. ALTERRA [Concomitant]
  13. KALYDECO [Suspect]
     Active Substance: IVACAFTOR
     Indication: CYSTIC FIBROSIS
     Dosage: 1 DOSAGE FORM, BID
     Route: 048
     Dates: start: 20150110
  14. URSODIOL. [Concomitant]
     Active Substance: URSODIOL
  15. QUETIAPINE [QUETIAPINE FUMARATE] [Concomitant]
     Active Substance: QUETIAPINE FUMARATE
  16. LC PLUS [Concomitant]
  17. CALCIUM CITRATE + D3 [Concomitant]
  18. MUCINEX [Concomitant]
     Active Substance: GUAIFENESIN
  19. ACETYLCYSTEIN [Concomitant]
     Active Substance: ACETYLCYSTEINE
  20. CLONAZEPAM. [Concomitant]
     Active Substance: CLONAZEPAM
  21. AZITHROMYCIN ANHYDROUS. [Concomitant]
     Active Substance: AZITHROMYCIN ANHYDROUS
  22. PULMOZYME [Concomitant]
     Active Substance: DORNASE ALFA
  23. PANCREASE [PANCREATIN] [Concomitant]
  24. ZOLOFT [Concomitant]
     Active Substance: SERTRALINE HYDROCHLORIDE
  25. TOPAMAX [Concomitant]
     Active Substance: TOPIRAMATE

REACTIONS (5)
  - Ligament sprain [Unknown]
  - Dyspepsia [Unknown]
  - Blood pressure decreased [Unknown]
  - Fall [Unknown]
  - Abnormal faeces [Unknown]

NARRATIVE: CASE EVENT DATE: 2019
